FAERS Safety Report 4770720-8 (Version None)
Quarter: 2005Q3

REPORT INFORMATION
  Report Type: 
  Country: None (occurrence: None)
  Receive Date: 20050914
  Receipt Date: 20050914
  Transmission Date: 20060218
  Serious: Yes (Death)
  Sender: FDA-Public Use
  Company Number: None

PATIENT
  Age: 5 Month
  Sex: Male

DRUGS (1)
  1. RILUZOLE [Suspect]
     Indication: SPINAL MUSCULAR ATROPHY
     Dosage: NONE WAS EVER GIVEN

REACTIONS (7)
  - APNOEA [None]
  - BRADYCARDIA [None]
  - HYPOVENTILATION [None]
  - LOSS OF CONSCIOUSNESS [None]
  - SKIN DISCOLOURATION [None]
  - SPINAL MUSCULAR ATROPHY [None]
  - VENA CAVA THROMBOSIS [None]
